FAERS Safety Report 14228840 (Version 1)
Quarter: 2017Q4

REPORT INFORMATION
  Report Type: Spontaneous
  Country: US (occurrence: US)
  Receive Date: 20171128
  Receipt Date: 20171128
  Transmission Date: 20180321
  Serious: No
  Sender: FDA-Public Use
  Company Number: US-SHIRE-US201724068

PATIENT
  Sex: Female

DRUGS (1)
  1. VYVANSE [Suspect]
     Active Substance: LISDEXAMFETAMINE DIMESYLATE
     Indication: PRODUCT USED FOR UNKNOWN INDICATION
     Dosage: 10 MG, 2X/DAY:BID (10MG AT 8AM AND 10MG AT 2PM)
     Route: 048

REACTIONS (6)
  - Self esteem decreased [Unknown]
  - Helplessness [Unknown]
  - Panic attack [Unknown]
  - Disturbance in attention [Unknown]
  - Anxiety [Unknown]
  - Anger [Unknown]
